APPROVED DRUG PRODUCT: CONJUGATED ESTROGENS
Active Ingredient: ESTROGENS, CONJUGATED
Strength: 1.25MG
Dosage Form/Route: TABLET;ORAL
Application: A214023 | Product #002 | TE Code: AB
Applicant: NOVAST LABORATORIES LTD
Approved: Oct 15, 2025 | RLD: No | RS: No | Type: RX

EXCLUSIVITY:
Code: CGT | Date: Apr 15, 2026